FAERS Safety Report 20791797 (Version 2)
Quarter: 2022Q2

REPORT INFORMATION
  Report Type: Spontaneous
  Country: RU (occurrence: RU)
  Receive Date: 20220505
  Receipt Date: 20220527
  Transmission Date: 20220721
  Serious: Yes (Life-Threatening, Hospitalization)
  Sender: FDA-Public Use
  Company Number: RU-TEVA-2022-RU-2033155

PATIENT
  Age: 29 Year
  Sex: Male

DRUGS (4)
  1. VINCRISTINE [Suspect]
     Active Substance: VINCRISTINE
     Indication: B-cell type acute leukaemia
     Dosage: ALL-2009 PROTOCOL
     Route: 065
     Dates: start: 202010, end: 202010
  2. DEXAMETHASONE [Suspect]
     Active Substance: DEXAMETHASONE
     Indication: B-cell type acute leukaemia
     Dosage: ALL-2009 PROTOCOL, 10 MG/M2
     Route: 065
     Dates: start: 20201007
  3. DAUNORUBICIN [Suspect]
     Active Substance: DAUNORUBICIN
     Indication: B-cell type acute leukaemia
     Dosage: ALL-2009 PROTOCOL
     Route: 065
     Dates: start: 202010, end: 202010
  4. CEFOPERAZONE\SULBACTAM [Concomitant]
     Active Substance: CEFOPERAZONE\SULBACTAM
     Indication: Evidence based treatment
     Route: 065
     Dates: start: 202010

REACTIONS (12)
  - SARS-CoV-2 RNA increased [Recovered/Resolved]
  - Respiratory failure [Recovered/Resolved]
  - Acute respiratory distress syndrome [Recovered/Resolved]
  - Dyspnoea at rest [Recovered/Resolved]
  - Tachypnoea [Recovered/Resolved]
  - Vomiting [Recovered/Resolved]
  - Epistaxis [Recovered/Resolved]
  - Tachycardia [Recovered/Resolved]
  - Blood pressure increased [Recovered/Resolved]
  - Pleural effusion [Recovered/Resolved]
  - Pericardial effusion [Recovered/Resolved]
  - Drug ineffective [Unknown]

NARRATIVE: CASE EVENT DATE: 20201001
